FAERS Safety Report 18433308 (Version 2)
Quarter: 2020Q4

REPORT INFORMATION
  Report Type: Report from Study
  Country: PA (occurrence: PA)
  Receive Date: 20201027
  Receipt Date: 20201105
  Transmission Date: 20210114
  Serious: Yes (Death, Hospitalization)
  Sender: FDA-Public Use
  Company Number: PA-INCYTE CORPORATION-2020IN008881

PATIENT

DRUGS (2)
  1. JAKAVI [Suspect]
     Active Substance: RUXOLITINIB
     Indication: PRIMARY MYELOFIBROSIS
     Dosage: 5 MG
     Route: 048
  2. JAKAVI [Suspect]
     Active Substance: RUXOLITINIB
     Dosage: 40 MG, BID
     Route: 048
     Dates: start: 202003

REACTIONS (15)
  - Bone pain [Unknown]
  - Vomiting [Unknown]
  - Malaise [Unknown]
  - Incorrect dose administered [Unknown]
  - Pneumonia [Fatal]
  - Haemoglobin decreased [Unknown]
  - Pyrexia [Unknown]
  - Feeling abnormal [Unknown]
  - Pain [Unknown]
  - Transformation to acute myeloid leukaemia [Unknown]
  - Pulmonary oedema [Unknown]
  - Abdominal pain [Unknown]
  - Eating disorder [Unknown]
  - Nausea [Unknown]
  - Asthenia [Unknown]

NARRATIVE: CASE EVENT DATE: 20201015
